FAERS Safety Report 24805215 (Version 1)
Quarter: 2025Q1

REPORT INFORMATION
  Report Type: Spontaneous
  Country: IT (occurrence: IT)
  Receive Date: 20250103
  Receipt Date: 20250103
  Transmission Date: 20250409
  Serious: Yes (Other)
  Sender: SANDOZ
  Company Number: IT-GLAXOSMITHKLINE-IT2021GSK107700_20210604055954

PATIENT
  Age: 24 Year
  Sex: Male

DRUGS (6)
  1. AZITHROMYCIN DIHYDRATE [Suspect]
     Active Substance: AZITHROMYCIN DIHYDRATE
     Indication: Acne
     Route: 048
  2. ADAPALENE [Suspect]
     Active Substance: ADAPALENE
     Indication: Acne
     Route: 061
  3. BENZOYL PEROXIDE [Suspect]
     Active Substance: BENZOYL PEROXIDE
     Indication: Acne
     Route: 061
  4. ERYTHROMYCIN [Suspect]
     Active Substance: ERYTHROMYCIN
     Indication: Acne
     Route: 061
  5. ISOTRETINOIN [Suspect]
     Active Substance: ISOTRETINOIN
     Indication: Acne
     Route: 065
  6. MINOCYCLINE [Suspect]
     Active Substance: MINOCYCLINE HYDROCHLORIDE
     Indication: Acne
     Route: 065

REACTIONS (5)
  - Enterobacter infection [Unknown]
  - Multiple-drug resistance [Unknown]
  - Blood creatine phosphokinase increased [Unknown]
  - Product use in unapproved indication [Unknown]
  - Off label use [Unknown]
